FAERS Safety Report 16735912 (Version 1)
Quarter: 2019Q3

REPORT INFORMATION
  Report Type: Spontaneous
  Country: FR (occurrence: FR)
  Receive Date: 20190823
  Receipt Date: 20190823
  Transmission Date: 20191005
  Serious: Yes (Death, Hospitalization, Other)
  Sender: FDA-Public Use
  Company Number: FR-MYLANLABS-2019M1078733

PATIENT
  Age: 71 Year
  Sex: Male

DRUGS (9)
  1. RITUXIMAB. [Suspect]
     Active Substance: RITUXIMAB
     Indication: WALDENSTROM^S MACROGLOBULINAEMIA
     Dosage: UNK
     Route: 065
  2. CYCLOPHOSPHAMIDE. [Concomitant]
     Active Substance: CYCLOPHOSPHAMIDE
     Indication: NEPHROPATHY
  3. CYCLOPHOSPHAMIDE. [Concomitant]
     Active Substance: CYCLOPHOSPHAMIDE
     Indication: HYPERVISCOSITY SYNDROME
     Dosage: UNK
  4. IDELALISIB [Concomitant]
     Active Substance: IDELALISIB
     Dosage: 100 MILLIGRAM, AFTER DERMOCORTICOID TREATMENT AT 100 MG TWICE A DAY
  5. DEXAMETHASONE. [Concomitant]
     Active Substance: DEXAMETHASONE
     Indication: NEPHROPATHY
     Dosage: UNK
  6. IMIPENEM [Concomitant]
     Active Substance: IMIPENEM
     Dosage: UNK
  7. IDELALISIB [Concomitant]
     Active Substance: IDELALISIB
     Dosage: 150 MILLIGRAM, BID
  8. CIPROFLOXACIN. [Suspect]
     Active Substance: CIPROFLOXACIN
     Indication: PSEUDOMONAS INFECTION
     Dosage: UNK
     Route: 065
  9. DEXAMETHASONE. [Concomitant]
     Active Substance: DEXAMETHASONE
     Indication: HYPERVISCOSITY SYNDROME

REACTIONS (9)
  - Septic shock [Fatal]
  - Encephalopathy [Fatal]
  - Oliguria [Fatal]
  - Confusional state [Fatal]
  - Drug ineffective [Fatal]
  - Pseudomonas infection [Fatal]
  - Mucocutaneous haemorrhage [Fatal]
  - Dysarthria [Fatal]
  - Product use in unapproved indication [Fatal]
